FAERS Safety Report 12111009 (Version 1)
Quarter: 2016Q1

REPORT INFORMATION
  Report Type: Spontaneous
  Country: GB (occurrence: GB)
  Receive Date: 20160224
  Receipt Date: 20160224
  Transmission Date: 20160526
  Serious: Yes (Other)
  Sender: FDA-Public Use
  Company Number: GB-ACTAVIS-2016-03351

PATIENT
  Age: 21 Year
  Sex: Male
  Weight: 36.3 kg

DRUGS (9)
  1. GLUCOSE (UNKNOWN) [Suspect]
     Active Substance: DEXTROSE
     Indication: HAEMODIALYSIS
     Dosage: UNK
     Route: 042
  2. MORPHINE SULFATE (UNKNOWN) [Suspect]
     Active Substance: MORPHINE SULFATE
     Indication: HAEMODIALYSIS
     Dosage: UNK
     Route: 042
  3. CALCIUM CHLORIDE DIHYDRATE [Suspect]
     Active Substance: CALCIUM CHLORIDE
     Indication: HAEMODIALYSIS
     Dosage: UNK
     Route: 042
  4. EPREX [Suspect]
     Active Substance: ERYTHROPOIETIN
     Indication: PRODUCT USED FOR UNKNOWN INDICATION
     Dosage: UNK (4000IU/0.4MLS)
     Route: 042
  5. OCTAGAM IMMUNE GLOBULIN (HUMAN) [Concomitant]
     Active Substance: HUMAN IMMUNOGLOBULIN G
     Indication: PRODUCT USED FOR UNKNOWN INDICATION
     Dosage: 15 G, UNK (10%)
     Route: 042
  6. SODIUM CHLORIDE. [Suspect]
     Active Substance: SODIUM CHLORIDE
     Indication: HAEMODIALYSIS
     Dosage: UNK
     Route: 042
  7. SODIUM CHLORIDE. [Suspect]
     Active Substance: SODIUM CHLORIDE
     Indication: DEVICE PRIMING
     Dosage: 1000 ML, UNK (0.9% BAXTER SODIUM CHLORIDE)
     Route: 042
  8. SODIUM LACTATE. [Suspect]
     Active Substance: SODIUM LACTATE
     Indication: HAEMODIALYSIS
     Dosage: UNK
     Route: 042
  9. MAGNESIUM CHLORIDE. [Suspect]
     Active Substance: MAGNESIUM CHLORIDE
     Indication: HAEMODIALYSIS
     Dosage: UNK
     Route: 042

REACTIONS (4)
  - Hypotension [Unknown]
  - Malaise [Unknown]
  - Haemorrhage [Unknown]
  - Dizziness [Unknown]
